FAERS Safety Report 4673067-3 (Version None)
Quarter: 2005Q2

REPORT INFORMATION
  Report Type: 
  Country: None (occurrence: None)
  Receive Date: 20050525
  Receipt Date: 20050221
  Transmission Date: 20051028
  Serious: Yes (Hospitalization)
  Sender: FDA-Public Use
  Company Number: PHRM2005FR00869

PATIENT
  Age: 59 Year
  Sex: Male
  Weight: 50 kg

DRUGS (7)
  1. LYTOS [Suspect]
     Dosage: 520 MG, BID
     Route: 048
     Dates: start: 20001027, end: 20020114
  2. TEGRETOL [Suspect]
     Dosage: UNK, UNK
     Route: 048
     Dates: start: 20001027
  3. SKENAN [Suspect]
     Dosage: UNK, UNK
     Route: 048
     Dates: start: 20001027
  4. DEXAMETHASONE [Concomitant]
     Dosage: UNK, UNK
     Dates: start: 19990601, end: 20000601
  5. AREDIA [Suspect]
     Indication: MULTIPLE MYELOMA
     Dosage: 90 MG, QMO
     Route: 042
     Dates: start: 19990219, end: 20000601
  6. RADIOTHERAPY [Concomitant]
     Dosage: 45 GY
  7. XANAX [Concomitant]
     Dates: start: 20001027

REACTIONS (5)
  - BONE NEOPLASM [None]
  - BONE SWELLING [None]
  - OSTEOLYSIS [None]
  - OSTEONECROSIS [None]
  - SKIN INFLAMMATION [None]
